FAERS Safety Report 7726345-5 (Version None)
Quarter: 2011Q3

REPORT INFORMATION
  Report Type: 
  Country: None (occurrence: None)
  Receive Date: 20110902
  Receipt Date: 20110821
  Transmission Date: 20111222
  Serious: Yes (Hospitalization, Other)
  Sender: FDA-Public Use
  Company Number: DE-UCBSA-037543

PATIENT
  Sex: Male
  Weight: 64 kg

DRUGS (1)
  1. KEPPRA [Suspect]
     Indication: SIMPLE PARTIAL SEIZURES
     Dosage: 500 MG / 100 ML NACL WITHIN 2-4 MINUTES
     Route: 041
     Dates: start: 20110714, end: 20110714

REACTIONS (3)
  - THROMBOPHLEBITIS [None]
  - VEIN DISORDER [None]
  - INFUSION SITE PAIN [None]
